FAERS Safety Report 11697708 (Version 1)
Quarter: 2015Q4

REPORT INFORMATION
  Report Type: Spontaneous
  Country: US (occurrence: US)
  Receive Date: 20151104
  Receipt Date: 20151104
  Transmission Date: 20160304
  Serious: No
  Sender: FDA-Public Use
  Company Number: US-PFIZER INC-2015375095

PATIENT

DRUGS (1)
  1. BICILLIN L-A [Suspect]
     Active Substance: PENICILLIN G BENZATHINE
     Indication: LYME DISEASE
     Dosage: UNK, WEEKLY

REACTIONS (4)
  - Arthralgia [Unknown]
  - Asthenia [Unknown]
  - Neuropathy peripheral [Unknown]
  - Malaise [Unknown]
